FAERS Safety Report 21586926 (Version 1)
Quarter: 2022Q4

REPORT INFORMATION
  Report Type: Spontaneous
  Country: GB (occurrence: None)
  Receive Date: 20221113
  Receipt Date: 20221113
  Transmission Date: 20230113
  Serious: Yes (Other)
  Sender: FDA-Public Use
  Company Number: GB-RedHill Biopharma Inc.-RDH202211-000094

PATIENT
  Age: 48 Year
  Sex: Female
  Weight: 61 kg

DRUGS (9)
  1. NALOXEGOL OXALATE [Suspect]
     Active Substance: NALOXEGOL OXALATE
     Indication: Constipation
     Dosage: 25 MG, QD
     Route: 065
     Dates: end: 20221016
  2. DIAZEPAM [Concomitant]
     Active Substance: DIAZEPAM
  3. ESTRADIOL [Concomitant]
     Active Substance: ESTRADIOL
  4. MIRABEGRON [Concomitant]
     Active Substance: MIRABEGRON
  5. PANTOPRAZOLE [Concomitant]
     Active Substance: PANTOPRAZOLE
  6. TOPIRAMATE [Concomitant]
     Active Substance: TOPIRAMATE
  7. TRAMADOL [Concomitant]
     Active Substance: TRAMADOL
  8. VENLAFAXINE [Concomitant]
     Active Substance: VENLAFAXINE HYDROCHLORIDE
  9. PRUCALOPRIDE [Concomitant]
     Active Substance: PRUCALOPRIDE

REACTIONS (5)
  - Palpitations [Recovering/Resolving]
  - Anxiety [Recovering/Resolving]
  - Suicidal ideation [Recovering/Resolving]
  - Headache [Not Recovered/Not Resolved]
  - Dyspnoea [Recovering/Resolving]

NARRATIVE: CASE EVENT DATE: 20220707
